FAERS Safety Report 15227683 (Version 1)
Quarter: 2018Q3

REPORT INFORMATION
  Report Type: Spontaneous
  Country: CA (occurrence: CA)
  Receive Date: 20180801
  Receipt Date: 20180801
  Transmission Date: 20181010
  Serious: Yes (Other)
  Sender: FDA-Public Use
  Company Number: CA-PFIZER INC-2018303733

PATIENT
  Age: 25 Year
  Sex: Male
  Weight: 78 kg

DRUGS (24)
  1. SYNTHROID TAB [Concomitant]
     Dosage: 150 UG, UNK
  2. TOVIAZ [Concomitant]
     Active Substance: FESOTERODINE FUMARATE
     Dosage: UNK
  3. ACZONE [Concomitant]
     Active Substance: DAPSONE
     Dosage: UNK
  4. CALCIUM [Concomitant]
     Active Substance: CALCIUM
     Dosage: UNK
  5. NASOCORT [Concomitant]
     Active Substance: BUDESONIDE
     Dosage: UNK
  6. OTRIVIN [Concomitant]
     Active Substance: XYLOMETAZOLINE
     Dosage: UNK
  7. DICLOFENAC [Concomitant]
     Active Substance: DICLOFENAC
     Dosage: UNK
  8. VITAMIN D [Concomitant]
     Active Substance: CHOLECALCIFEROL
     Dosage: UNK
  9. CIPRALEX [Concomitant]
     Active Substance: ESCITALOPRAM OXALATE
     Indication: HYPERTONIC BLADDER
     Dosage: UNK
  10. CONSTELLA [Concomitant]
     Active Substance: LINACLOTIDE
     Dosage: UNK
  11. ZINC GLUCONATE [Concomitant]
     Active Substance: ZINC GLUCONATE
     Dosage: UNK
  12. BENZACLIN [Concomitant]
     Active Substance: BENZOYL PEROXIDE\CLINDAMYCIN PHOSPHATE
     Dosage: UNK
  13. CETAPHIL [Concomitant]
     Active Substance: AVOBENZONE\OCTOCRYLENE\TRICLOSAN
     Dosage: UNK (DAILY FACIAL MOISTURIZER)
  14. FLOVENT HFA [Concomitant]
     Active Substance: FLUTICASONE PROPIONATE
     Dosage: UNK
  15. ZYLOPRIM [Concomitant]
     Active Substance: ALLOPURINOL
     Dosage: UNK
  16. AZITHROMYCIN ANHYDROUS. [Concomitant]
     Active Substance: AZITHROMYCIN ANHYDROUS
     Dosage: UNK
  17. GENTEAL MILD [Concomitant]
     Active Substance: HYPROMELLOSE 2910 (4000 MPA.S)
     Dosage: UNK
  18. OMEGA 3?6?9 [Concomitant]
     Active Substance: FISH OIL
     Dosage: UNK
  19. SEROQUEL [Concomitant]
     Active Substance: QUETIAPINE FUMARATE
     Dosage: UNK
  20. TEARS PLUS [Concomitant]
     Dosage: UNK
  21. PANTOPRAZOLE [Suspect]
     Active Substance: PANTOPRAZOLE
     Indication: GASTROOESOPHAGEAL REFLUX DISEASE
     Dosage: 40 MG, QD (ONE EVERY ONE DAY)
     Route: 048
  22. EPIVAL [Concomitant]
     Active Substance: DIVALPROEX SODIUM
     Dosage: UNK
  23. TECTA [Concomitant]
     Active Substance: PANTOPRAZOLE MAGNESIUM
     Dosage: UNK
  24. TYLENOL [Concomitant]
     Active Substance: ACETAMINOPHEN
     Dosage: UNK

REACTIONS (3)
  - Mental impairment [Recovered/Resolved]
  - Product substitution issue [Recovered/Resolved]
  - General physical health deterioration [Recovered/Resolved]
